FAERS Safety Report 20913946 (Version 10)
Quarter: 2024Q1

REPORT INFORMATION
  Report Type: Spontaneous
  Country: CL (occurrence: CL)
  Receive Date: 20220604
  Receipt Date: 20240322
  Transmission Date: 20240410
  Serious: Yes (Other)
  Sender: FDA-Public Use
  Company Number: CL-AMGEN-CHLSP2021119509

PATIENT
  Age: 70 Year
  Sex: Female

DRUGS (2)
  1. REPATHA [Suspect]
     Active Substance: EVOLOCUMAB
     Indication: Hypercholesterolaemia
     Dosage: 140 MILLIGRAM, Q2WK
     Route: 058
     Dates: start: 20210414
  2. LEVOTHYROXINE SODIUM [Concomitant]
     Active Substance: LEVOTHYROXINE SODIUM
     Dosage: UNK

REACTIONS (14)
  - Acute respiratory distress syndrome [Unknown]
  - Influenza [Recovered/Resolved]
  - Injection site hypersensitivity [Recovered/Resolved]
  - Dysphonia [Not Recovered/Not Resolved]
  - Sputum purulent [Recovering/Resolving]
  - Respiratory symptom [Recovering/Resolving]
  - Administration site haemorrhage [Unknown]
  - Application site haemorrhage [Unknown]
  - Mental disorder [Unknown]
  - Cough [Recovered/Resolved]
  - Injection site pain [Recovered/Resolved]
  - Nasopharyngitis [Unknown]
  - Wrong technique in product usage process [Unknown]
  - Inappropriate schedule of product administration [Unknown]

NARRATIVE: CASE EVENT DATE: 20210730
